FAERS Safety Report 5460129-6 (Version None)
Quarter: 2007Q3

REPORT INFORMATION
  Report Type: 
  Country: None (occurrence: None)
  Receive Date: 20070919
  Receipt Date: 20070515
  Transmission Date: 20080115
  Serious: No
  Sender: FDA-Public Use
  Company Number: US-ASTRAZENECA-2007UW12034

PATIENT
  Age: 64 Year
  Sex: Male
  Weight: 113.4 kg

DRUGS (10)
  1. SEROQUEL [Suspect]
     Indication: BIPOLAR DISORDER
     Route: 048
     Dates: start: 20060801, end: 20070201
  2. ATIVAN [Concomitant]
  3. ATENOLOL [Concomitant]
  4. PAXIL [Concomitant]
  5. FLOMAX [Concomitant]
  6. PROMETHAZINE [Concomitant]
  7. PRILOSEC [Concomitant]
  8. ZANTAC 150 [Concomitant]
  9. IMODIUM [Concomitant]
  10. MECLIZINE [Concomitant]

REACTIONS (4)
  - DIZZINESS [None]
  - GLOSSITIS [None]
  - OEDEMA PERIPHERAL [None]
  - TONGUE BLACK HAIRY [None]
